FAERS Safety Report 17362452 (Version 1)
Quarter: 2020Q1

REPORT INFORMATION
  Report Type: Not Available
  Country: US (occurrence: US)
  Receive Date: 20200203
  Receipt Date: 20200203
  Transmission Date: 20200409
  Serious: No
  Sender: FDA-Public Use
  Company Number: US-NEUROCRINE BIOSCIENCES INC.-2020NBI00280

PATIENT
  Sex: Male

DRUGS (27)
  1. XOLAIR [Concomitant]
     Active Substance: OMALIZUMAB
  2. IPRATROPIUM/ALBUTEROL [Concomitant]
     Active Substance: ALBUTEROL\IPRATROPIUM
  3. ATORVASTATIN [Concomitant]
     Active Substance: ATORVASTATIN
  4. FUROSEMIDE. [Concomitant]
     Active Substance: FUROSEMIDE
  5. GINGKO BILOBA [Concomitant]
     Active Substance: GINKGO
  6. ASPIRIN. [Concomitant]
     Active Substance: ASPIRIN
  7. MONTELUKAST [Concomitant]
     Active Substance: MONTELUKAST SODIUM
  8. GABAPENTIN. [Concomitant]
     Active Substance: GABAPENTIN
  9. ZALEPLON. [Concomitant]
     Active Substance: ZALEPLON
  10. SPIRIVA [Concomitant]
     Active Substance: TIOTROPIUM BROMIDE MONOHYDRATE
  11. ELIQUIS [Concomitant]
     Active Substance: APIXABAN
  12. VITAMIN D [Concomitant]
     Active Substance: VITAMIN D NOS
  13. DIGOXIN. [Concomitant]
     Active Substance: DIGOXIN
  14. POTASSIUM CHLORIDE. [Concomitant]
     Active Substance: POTASSIUM CHLORIDE
  15. ROPINIROLE. [Concomitant]
     Active Substance: ROPINIROLE
  16. MVI [Concomitant]
     Active Substance: VITAMINS
  17. LATUDA [Concomitant]
     Active Substance: LURASIDONE HYDROCHLORIDE
  18. ZYRTEC [Concomitant]
     Active Substance: CETIRIZINE HYDROCHLORIDE
  19. PHENELZINE [Concomitant]
     Active Substance: PHENELZINE
  20. METOPROLOL. [Concomitant]
     Active Substance: METOPROLOL
  21. MELATONIN [Concomitant]
     Active Substance: MELATONIN
  22. INGREZZA [Suspect]
     Active Substance: VALBENAZINE
     Indication: TARDIVE DYSKINESIA
     Route: 048
  23. DONEPEZIL. [Concomitant]
     Active Substance: DONEPEZIL
  24. BREO ELLIPTA [Concomitant]
     Active Substance: FLUTICASONE FUROATE\VILANTEROL TRIFENATATE
  25. TAMSULOSIN [Concomitant]
     Active Substance: TAMSULOSIN
  26. FINASTERIDE. [Concomitant]
     Active Substance: FINASTERIDE
  27. FISH OIL [Concomitant]
     Active Substance: FISH OIL

REACTIONS (2)
  - Lethargy [Recovering/Resolving]
  - Somnolence [Recovering/Resolving]
